FAERS Safety Report 17642139 (Version 1)
Quarter: 2020Q2

REPORT INFORMATION
  Report Type: Spontaneous
  Country: NL (occurrence: IT)
  Receive Date: 20200408
  Receipt Date: 20200408
  Transmission Date: 20200713
  Serious: Yes (Other)
  Sender: FDA-Public Use
  Company Number: IT-FRESENIUS KABI-FK202003457

PATIENT
  Age: 44 Year
  Sex: Male
  Weight: 0 kg

DRUGS (1)
  1. LEVOFLOXACIN 5 MG/ML [Suspect]
     Active Substance: LEVOFLOXACIN
     Indication: UROGENITAL DISORDER
     Route: 065
     Dates: start: 20200111, end: 20200111

REACTIONS (2)
  - Mechanical urticaria [Recovering/Resolving]
  - Erythema [Recovering/Resolving]

NARRATIVE: CASE EVENT DATE: 20200111
